FAERS Safety Report 21647834 (Version 2)
Quarter: 2023Q1

REPORT INFORMATION
  Report Type: Report from Study
  Country: FR (occurrence: FR)
  Receive Date: 20221128
  Receipt Date: 20230224
  Transmission Date: 20230417
  Serious: Yes (Hospitalization)
  Sender: FDA-Public Use
  Company Number: FR-TAKEDA-2022TUS088475

PATIENT
  Sex: Female

DRUGS (5)
  1. HUMAN C1-ESTERASE INHIBITOR [Suspect]
     Active Substance: HUMAN C1-ESTERASE INHIBITOR
     Indication: Hereditary angioedema
     Dosage: 1000 INTERNATIONAL UNIT, SINGLE
     Route: 042
     Dates: start: 20160621, end: 20160621
  2. HUMAN C1-ESTERASE INHIBITOR [Suspect]
     Active Substance: HUMAN C1-ESTERASE INHIBITOR
     Indication: Hereditary angioedema
     Dosage: 1000 INTERNATIONAL UNIT, SINGLE
     Route: 042
     Dates: start: 20160621, end: 20160621
  3. HUMAN C1-ESTERASE INHIBITOR [Suspect]
     Active Substance: HUMAN C1-ESTERASE INHIBITOR
     Indication: Hereditary angioedema
     Dosage: 1000 INTERNATIONAL UNIT, SINGLE
     Route: 042
     Dates: start: 20160621, end: 20160621
  4. DANAZOL [Concomitant]
     Active Substance: DANAZOL
     Indication: Angioedema
     Dosage: 600 MILLIGRAM
     Route: 065
     Dates: start: 20160810, end: 201808
  5. CEFAMANDOLE [Concomitant]
     Active Substance: CEFAMANDOLE
     Indication: Antibiotic prophylaxis
     Dosage: UNK
     Route: 065
     Dates: start: 20160810, end: 201608

REACTIONS (1)
  - Coronary artery disease [Recovered/Resolved]

NARRATIVE: CASE EVENT DATE: 20160622
